FAERS Safety Report 6532677-9 (Version None)
Quarter: 2009Q4

REPORT INFORMATION
  Report Type: 
  Country: None (occurrence: None)
  Receive Date: 20091231
  Receipt Date: 20091217
  Transmission Date: 20100525
  Serious: Yes (Death)
  Sender: FDA-Public Use
  Company Number: 078

PATIENT
  Age: 87 Year
  Sex: Male

DRUGS (1)
  1. FAZACLO ODT [Suspect]
     Indication: AGGRESSION
     Dosage: 12.5 MG PO DAILY
     Route: 048
     Dates: start: 20060921, end: 20061023

REACTIONS (9)
  - CARDIAC DISORDER [None]
  - DEMENTIA [None]
  - ESSENTIAL HYPERTENSION [None]
  - LETHARGY [None]
  - LUNG DISORDER [None]
  - NERVOUS SYSTEM DISORDER [None]
  - NEURODEGENERATIVE DISORDER [None]
  - OXYGEN SATURATION DECREASED [None]
  - UNRESPONSIVE TO STIMULI [None]
